FAERS Safety Report 9714475 (Version 1)
Quarter: 2013Q4

REPORT INFORMATION
  Report Type: Spontaneous
  Country: US (occurrence: US)
  Receive Date: 20131126
  Receipt Date: 20131126
  Transmission Date: 20140711
  Serious: No
  Sender: FDA-Public Use
  Company Number: US-BIOGENIDEC-2013BI084859

PATIENT
  Age: 59 Year
  Sex: Male
  Weight: 77 kg

DRUGS (10)
  1. TECFIDERA [Suspect]
     Indication: MULTIPLE SCLEROSIS
     Route: 048
  2. TECFIDERA [Suspect]
     Indication: MULTIPLE SCLEROSIS
     Route: 048
     Dates: start: 20130808
  3. OXCARBAZEPIN [Concomitant]
  4. ROPINIROLE [Concomitant]
  5. LEVITRA [Concomitant]
  6. CLONAZEPAM [Concomitant]
  7. GABAPENTIN [Concomitant]
  8. CITALOPRAM [Concomitant]
  9. NALTREXONE [Concomitant]
  10. VITAMIN D [Concomitant]

REACTIONS (6)
  - Pain [Unknown]
  - Muscle spasticity [Unknown]
  - Paraesthesia [Unknown]
  - Hot flush [Unknown]
  - Diarrhoea [Recovered/Resolved]
  - Flushing [Recovered/Resolved]
